FAERS Safety Report 5356865-2 (Version None)
Quarter: 2007Q2

REPORT INFORMATION
  Report Type: 
  Country: None (occurrence: None)
  Receive Date: 20070614
  Receipt Date: 20070201
  Transmission Date: 20071010
  Serious: No
  Sender: FDA-Public Use
  Company Number: US-ASTRAZENECA-2007UW02292

PATIENT
  Age: 85 Year
  Sex: Male
  Weight: 92.1 kg

DRUGS (3)
  1. ATACAND [Suspect]
     Route: 048
     Dates: start: 20061101
  2. SOTALOL HYDROCHLORIDE [Concomitant]
  3. NORVASC [Concomitant]

REACTIONS (3)
  - DIZZINESS [None]
  - LOSS OF CONSCIOUSNESS [None]
  - SYNCOPE [None]
